FAERS Safety Report 9463513 (Version 3)
Quarter: 2013Q3

REPORT INFORMATION
  Report Type: Spontaneous
  Country: GB (occurrence: GB)
  Receive Date: 20130819
  Receipt Date: 20130827
  Transmission Date: 20140515
  Serious: Yes (Other)
  Sender: FDA-Public Use
  Company Number: GB-009507513-1303GBR010896

PATIENT
  Age: 61 Year
  Sex: Male
  Weight: 100 kg

DRUGS (2)
  1. ONCOTICE [Suspect]
     Indication: BLADDER CANCER
     Dosage: UNK
     Route: 066
     Dates: start: 201210, end: 201210
  2. METFORMIN [Concomitant]

REACTIONS (1)
  - Blood glucose increased [Recovered/Resolved]
